FAERS Safety Report 4658550-9 (Version None)
Quarter: 2005Q2

REPORT INFORMATION
  Report Type: 
  Country: None (occurrence: None)
  Receive Date: 20050511
  Receipt Date: 20030505
  Transmission Date: 20051028
  Serious: Yes (Death)
  Sender: FDA-Public Use
  Company Number: ZA-BOEHRINGER INGELHEIM PHARMACEUTICALS, INC.-2003-DE-01737ZA

PATIENT
  Sex: Female
  Weight: 21 kg

DRUGS (3)
  1. VIRAMUNE [Suspect]
     Indication: HIV INFECTION
     Dosage: STRENGTH: 50MG/5ML
     Route: 048
     Dates: start: 20030423, end: 20030504
  2. 3TC [Suspect]
     Indication: HIV INFECTION
     Route: 048
     Dates: start: 20030423, end: 20030504
  3. RETROVIR [Suspect]
     Indication: HIV INFECTION
     Route: 048
     Dates: start: 20030423, end: 20030504

REACTIONS (3)
  - OROPHARYNGEAL CANDIDIASIS [None]
  - PHARYNGITIS [None]
  - SUDDEN DEATH [None]
